FAERS Safety Report 24583875 (Version 1)
Quarter: 2024Q4

REPORT INFORMATION
  Report Type: Spontaneous
  Country: CN (occurrence: CN)
  Receive Date: 20241106
  Receipt Date: 20241106
  Transmission Date: 20250114
  Serious: Yes (Other)
  Sender: RANBAXY
  Company Number: CN-SUN PHARMACEUTICAL INDUSTRIES LTD-2024R1-477380

PATIENT
  Age: 60 Year
  Sex: Male

DRUGS (2)
  1. CAPECITABINE [Suspect]
     Active Substance: CAPECITABINE
     Indication: Chemotherapy
     Dosage: 1000 MILLIGRAM/SQ. METER, BID/ EVERY THREE WEEKS
     Route: 048
  2. OXALIPLATIN [Suspect]
     Active Substance: OXALIPLATIN
     Indication: Chemotherapy
     Dosage: 130 MILLIGRAM/SQ. METER
     Route: 042

REACTIONS (4)
  - Metastases to liver [Unknown]
  - Hereditary non-polyposis colorectal cancer syndrome [Unknown]
  - Disease recurrence [Unknown]
  - DNA mismatch repair protein gene mutation [Unknown]
